FAERS Safety Report 4616795-8 (Version None)
Quarter: 2005Q1

REPORT INFORMATION
  Report Type: 
  Country: None (occurrence: None)
  Receive Date: 20050321
  Receipt Date: 20050315
  Transmission Date: 20050727
  Serious: Yes (Other)
  Sender: FDA-Public Use
  Company Number: 200510279BVD

PATIENT
  Sex: 0

DRUGS (2)
  1. CIPROFLOXACIN [Suspect]
  2. CIPROFLOXACIN [Suspect]

REACTIONS (2)
  - ARRHYTHMIA [None]
  - EXTRASYSTOLES [None]
